FAERS Safety Report 24232623 (Version 1)
Quarter: 2024Q3

REPORT INFORMATION
  Report Type: Spontaneous
  Country: US (occurrence: US)
  Receive Date: 20240821
  Receipt Date: 20240821
  Transmission Date: 20241016
  Serious: Yes (Other)
  Sender: PFIZER
  Company Number: US-PFIZER INC-PV202400108382

PATIENT
  Age: 65 Year
  Sex: Male

DRUGS (1)
  1. XELJANZ XR [Suspect]
     Active Substance: TOFACITINIB CITRATE
     Dosage: 11 MG

REACTIONS (5)
  - Rheumatoid arthritis [Unknown]
  - Ankle fracture [Unknown]
  - Limb injury [Unknown]
  - Impaired healing [Unknown]
  - Rhinorrhoea [Not Recovered/Not Resolved]
